FAERS Safety Report 5890004-4 (Version None)
Quarter: 2008Q3

REPORT INFORMATION
  Report Type: 
  Country: None (occurrence: None)
  Receive Date: 20080919
  Receipt Date: 20080908
  Transmission Date: 20090109
  Serious: Yes (Other)
  Sender: FDA-Public Use
  Company Number: US-PFIZER INC-2008069768

PATIENT
  Sex: Female
  Weight: 61.2 kg

DRUGS (11)
  1. LYRICA [Suspect]
     Indication: FIBROMYALGIA
     Route: 048
     Dates: start: 20080421, end: 20080625
  2. ELAVIL [Concomitant]
     Dates: start: 20080501
  3. PROZAC [Concomitant]
     Dates: start: 20080501
  4. ORTHO TRI-CYCLEN [Concomitant]
     Indication: CONTRACEPTION
  5. XANAX [Concomitant]
  6. VITAMIN B-12 [Concomitant]
  7. COENZYME Q10 [Concomitant]
  8. IBUPROFEN [Concomitant]
  9. LORTAB [Concomitant]
     Dates: start: 20080401
  10. SOMA [Concomitant]
     Dates: start: 20080401
  11. VICODIN [Concomitant]
     Dates: start: 20080301

REACTIONS (6)
  - ACCIDENT [None]
  - C-REACTIVE PROTEIN INCREASED [None]
  - CONFUSIONAL STATE [None]
  - INTERVERTEBRAL DISC PROTRUSION [None]
  - PNEUMONIA [None]
  - SOMNOLENCE [None]
